FAERS Safety Report 17264057 (Version 11)
Quarter: 2025Q4

REPORT INFORMATION
  Report Type: Spontaneous
  Country: US (occurrence: US)
  Receive Date: 20200113
  Receipt Date: 20251222
  Transmission Date: 20260117
  Serious: Yes (Other)
  Sender: VERTEX
  Company Number: US-VERTEX PHARMACEUTICALS-2020-000126

PATIENT
  Sex: Male
  Weight: 73 kg

DRUGS (20)
  1. TRIKAFTA [Suspect]
     Active Substance: ELEXACAFTOR\IVACAFTOR\TEZACAFTOR
     Indication: Cystic fibrosis
     Dosage: 2 ORANGE TABLETS IN THE MORNING AND 1 BLUE TABLET IN THE EVENING
     Route: 061
     Dates: start: 201912, end: 20200102
  2. PERIACTIN [Concomitant]
     Active Substance: CYPROHEPTADINE HYDROCHLORIDE
  3. OMEPRAZOLE [Concomitant]
     Active Substance: OMEPRAZOLE
     Dosage: UNK
  4. METHAMPHETAMINE [Concomitant]
     Active Substance: METHAMPHETAMINE
     Indication: Attention deficit hyperactivity disorder
     Dosage: UNK
  5. ALBUTEROL [Concomitant]
     Active Substance: ALBUTEROL
     Dosage: UNK
  6. SODIUM CHLORIDE [Concomitant]
     Active Substance: SODIUM CHLORIDE
     Dosage: UNK
  7. PULMOZYME [Concomitant]
     Active Substance: DORNASE ALFA
     Dosage: UNK
  8. TOBRAMYCIN [Concomitant]
     Active Substance: TOBRAMYCIN
     Dosage: UNK
  9. ADVAIR HFA [Concomitant]
     Active Substance: FLUTICASONE PROPIONATE\SALMETEROL XINAFOATE
     Dosage: UNK
  10. CREON [Concomitant]
     Active Substance: PANCRELIPASE AMYLASE\PANCRELIPASE LIPASE\PANCRELIPASE PROTEASE
     Dosage: 24K
  11. CREON [Concomitant]
     Active Substance: PANCRELIPASE AMYLASE\PANCRELIPASE LIPASE\PANCRELIPASE PROTEASE
     Dosage: 36K-114K
  12. VITAMIN D [Concomitant]
     Active Substance: VITAMIN D NOS
     Dosage: 400
  13. MIRALAX [Concomitant]
     Active Substance: POLYETHYLENE GLYCOL 3350
     Dosage: 17 GRAM/ DOSE POWDER
  14. MOTRIN [Concomitant]
     Active Substance: IBUPROFEN
     Dosage: UNK
  15. DULERA [Concomitant]
     Active Substance: FORMOTEROL FUMARATE DIHYDRATE\MOMETASONE FUROATE
     Dosage: 100-5 MCG
  16. ALBUTEROL SULFATE [Concomitant]
     Active Substance: ALBUTEROL SULFATE
     Dosage: UNK
  17. ZYRTEC [Concomitant]
     Active Substance: CETIRIZINE HYDROCHLORIDE
     Dosage: 10 MG
  18. SODIUM CHLORIDE [Concomitant]
     Active Substance: SODIUM CHLORIDE
     Dosage: UNK
  19. CYPROHEPTADINE HYDROCHLORIDE [Concomitant]
     Active Substance: CYPROHEPTADINE HYDROCHLORIDE
     Dosage: 4 MG
  20. WIXELA INHUB [Concomitant]
     Active Substance: FLUTICASONE PROPIONATE\SALMETEROL XINAFOATE
     Dosage: 100-50 MCG

REACTIONS (18)
  - Hallucination [Recovered/Resolved]
  - Abnormal behaviour [Recovered/Resolved]
  - Psychotic disorder [Unknown]
  - Disorientation [Unknown]
  - Delirium [Recovering/Resolving]
  - Mood altered [Recovered/Resolved]
  - Mania [Unknown]
  - Aggression [Recovering/Resolving]
  - Energy increased [Recovered/Resolved]
  - Malaise [Unknown]
  - Poor quality sleep [Recovered/Resolved]
  - Cough [Recovered/Resolved]
  - Lethargy [Recovered/Resolved]
  - Chest pain [Not Recovered/Not Resolved]
  - Insomnia [Recovered/Resolved]
  - Influenza like illness [Recovered/Resolved]
  - Headache [Recovered/Resolved]
  - Abdominal pain [Unknown]

NARRATIVE: CASE EVENT DATE: 20190101
